FAERS Safety Report 11271031 (Version 1)
Quarter: 2015Q3

REPORT INFORMATION
  Report Type: Report from Study
  Country: US (occurrence: US)
  Receive Date: 20150714
  Receipt Date: 20150714
  Transmission Date: 20151125
  Serious: Yes (Other)
  Sender: FDA-Public Use
  Company Number: US-AMGEN-USASL2015067589

PATIENT
  Age: 51 Year
  Sex: Male

DRUGS (1)
  1. ENBREL [Suspect]
     Active Substance: ETANERCEPT
     Indication: RHEUMATOID ARTHRITIS
     Dosage: 50 MG, UNK
     Route: 065
     Dates: start: 20140401

REACTIONS (7)
  - Visual impairment [Unknown]
  - Dizziness postural [Unknown]
  - Gastric bypass [Recovered/Resolved]
  - Bruxism [Unknown]
  - Headache [Unknown]
  - Liver disorder [Unknown]
  - Tunnel vision [Unknown]

NARRATIVE: CASE EVENT DATE: 2014
